FAERS Safety Report 9222774 (Version 2)
Quarter: 2013Q2

REPORT INFORMATION
  Report Type: Report from Study
  Country: US (occurrence: US)
  Receive Date: 20130410
  Receipt Date: 20130625
  Transmission Date: 20140414
  Serious: Yes (Other)
  Sender: FDA-Public Use
  Company Number: US-ROCHE-1209687

PATIENT
  Age: 64 Year
  Sex: Male

DRUGS (3)
  1. ALTEPLASE [Suspect]
     Indication: PROSTATE CANCER METASTATIC
     Dosage: 6 HOURS OF CONTINUOUS INFUSION
     Route: 065
  2. MESNA [Suspect]
     Indication: PROSTATE CANCER METASTATIC
     Dosage: 240 MG BOLUS, BOLUS IMMEDIATELY BEFORE THE INITIATION OF THE T-PA INFUSION, FOLLOWED BY A 6-HOUR INF
     Route: 065
  3. MESNA [Suspect]
     Dosage: FOLLOWED BY 50 MG/G FOR 6 HOURS, INFUSION DAILY FOR 3 DAYS, REPEATED EVERY 2 WEEKS
     Route: 065

REACTIONS (2)
  - Deep vein thrombosis [Unknown]
  - Pulmonary embolism [Unknown]
